FAERS Safety Report 8974281 (Version 1)
Quarter: 2012Q4

REPORT INFORMATION
  Report Type: Spontaneous
  Country: US (occurrence: None)
  Receive Date: 20121217
  Receipt Date: 20121217
  Transmission Date: 20130627
  Serious: Yes (Disabling)
  Sender: FDA-Public Use
  Company Number: None

PATIENT
  Sex: Female
  Weight: 61.24 kg

DRUGS (1)
  1. LUPRON DEPOT [Suspect]
     Indication: ENDOMETRIOSIS
     Dosage: 13 months sq
     Route: 058
     Dates: start: 20031001, end: 20041101

REACTIONS (16)
  - Asthma [None]
  - Vomiting [None]
  - Hypoaesthesia [None]
  - Muscular weakness [None]
  - Parkinsonism [None]
  - Tooth loss [None]
  - Drug ineffective [None]
  - Meningitis [None]
  - Amnesia [None]
  - Cognitive disorder [None]
  - Attention deficit/hyperactivity disorder [None]
  - Incontinence [None]
  - Thyroid disorder [None]
  - Uterine cancer [None]
  - Salpingo-oophorectomy [None]
  - Multiple sclerosis [None]
